FAERS Safety Report 8016282-3 (Version None)
Quarter: 2011Q4

REPORT INFORMATION
  Report Type: 
  Country: None (occurrence: None)
  Receive Date: 20111227
  Receipt Date: 20111215
  Transmission Date: 20120403
  Serious: Yes (Other)
  Sender: FDA-Public Use
  Company Number: 2011P1014409

PATIENT
  Age: 64 Year
  Sex: Male

DRUGS (1)
  1. WARFARIN SODIUM [Suspect]

REACTIONS (4)
  - DYSPHAGIA [None]
  - PHARYNGEAL HAEMATOMA [None]
  - PANIC REACTION [None]
  - INTERNATIONAL NORMALISED RATIO INCREASED [None]
